FAERS Safety Report 17441161 (Version 2)
Quarter: 2020Q1

REPORT INFORMATION
  Report Type: Report from Study
  Country: US (occurrence: US)
  Receive Date: 20200220
  Receipt Date: 20200313
  Transmission Date: 20200409
  Serious: No
  Sender: FDA-Public Use
  Company Number: US-SA-2020SA042527

PATIENT
  Age: 45 Year
  Sex: Female

DRUGS (3)
  1. DUPILUMAB [Suspect]
     Active Substance: DUPILUMAB
     Dosage: UNK
     Dates: start: 201912
  2. DUPILUMAB [Suspect]
     Active Substance: DUPILUMAB
     Indication: ASTHMA
     Dosage: 300 MG, QOW
     Route: 058
     Dates: start: 20191101
  3. DUPILUMAB [Suspect]
     Active Substance: DUPILUMAB
     Dosage: 2 DF, QM
     Route: 058
     Dates: start: 20200208

REACTIONS (7)
  - Off label use [Unknown]
  - Serum sickness [Unknown]
  - Pain [Unknown]
  - Ocular hyperaemia [Unknown]
  - Rash [Recovering/Resolving]
  - Feeling abnormal [Unknown]
  - Peripheral swelling [Not Recovered/Not Resolved]

NARRATIVE: CASE EVENT DATE: 20200208
